FAERS Safety Report 11228003 (Version 1)
Quarter: 2015Q2

REPORT INFORMATION
  Report Type: Spontaneous
  Country: JP (occurrence: JP)
  Receive Date: 20150630
  Receipt Date: 20150630
  Transmission Date: 20150821
  Serious: Yes (Other)
  Sender: FDA-Public Use
  Company Number: JP-PFIZER INC-2015211625

PATIENT
  Age: 58 Year
  Sex: Female

DRUGS (2)
  1. TRIAZOLAM. [Suspect]
     Active Substance: TRIAZOLAM
     Indication: INSOMNIA
     Dosage: 0.25 MG, UNK
     Route: 048
  2. TRIAZOLAM. [Suspect]
     Active Substance: TRIAZOLAM
     Dosage: 0.50 MG, UNK
     Route: 048

REACTIONS (2)
  - Intentional product misuse [Recovered/Resolved]
  - Non-cardiogenic pulmonary oedema [Recovered/Resolved]
